FAERS Safety Report 26119671 (Version 1)
Quarter: 2025Q4

REPORT INFORMATION
  Report Type: Spontaneous
  Country: US (occurrence: US)
  Receive Date: 20251204
  Receipt Date: 20251204
  Transmission Date: 20260118
  Serious: Yes (Life-Threatening, Hospitalization, Other)
  Sender: JUBILANT
  Company Number: US-JUBILANT CADISTA PHARMACEUTICALS-2023JUB00288~

PATIENT
  Age: 60 Year
  Sex: Male

DRUGS (4)
  1. LAMOTRIGINE [Suspect]
     Active Substance: LAMOTRIGINE
     Indication: Product used for unknown indication
     Dosage: UNK, UNK (UNKNOWN QUANTITY INGESTION)
     Route: 048
  2. RISPERIDONE [Suspect]
     Active Substance: RISPERIDONE
     Indication: Product used for unknown indication
     Dosage: UNK, UNK (UNKNOWN QUANTITY INGESTION)
     Route: 048
  3. ESCITALOPRAM [Suspect]
     Active Substance: ESCITALOPRAM OXALATE
     Indication: Product used for unknown indication
     Dosage: UNK, UNK (UNKNOWN QUANTITY INGESTION)
     Route: 048
  4. ATORVASTATIN [Suspect]
     Active Substance: ATORVASTATIN
     Indication: Product used for unknown indication
     Dosage: UNK,  UNK
     Route: 048

REACTIONS (7)
  - Metabolic function test abnormal [Recovered/Resolved]
  - Blood potassium decreased [Recovered/Resolved]
  - Intentional overdose [Recovered/Resolved]
  - Haemodynamic instability [Recovered/Resolved]
  - Electrocardiogram QRS complex prolonged [Recovered/Resolved]
  - Shock [Recovered/Resolved]
  - Electrocardiogram QT prolonged [Recovered/Resolved]
